FAERS Safety Report 23378712 (Version 1)
Quarter: 2024Q1

REPORT INFORMATION
  Report Type: Spontaneous
  Country: FR (occurrence: FR)
  Receive Date: 20240108
  Receipt Date: 20240108
  Transmission Date: 20240410
  Serious: Yes (Other)
  Sender: FDA-Public Use
  Company Number: None

PATIENT
  Age: 42 Year
  Sex: Female
  Weight: 75 kg

DRUGS (3)
  1. ETANERCEPT [Suspect]
     Active Substance: ETANERCEPT
     Indication: Axial spondyloarthritis
     Route: 058
     Dates: start: 20230515
  2. ADALIMUMAB [Suspect]
     Active Substance: ADALIMUMAB\ISOPROPYL ALCOHOL
     Indication: Axial spondyloarthritis
     Route: 058
     Dates: start: 202302, end: 20230515
  3. PREDNISONE [Suspect]
     Active Substance: PREDNISONE
     Indication: Axial spondyloarthritis
     Dosage: UNKNOWN
     Route: 048
     Dates: start: 20221108, end: 202302

REACTIONS (2)
  - Condition aggravated [Not Recovered/Not Resolved]
  - Bone infarction [Not Recovered/Not Resolved]

NARRATIVE: CASE EVENT DATE: 20230801
